FAERS Safety Report 6423882-0 (Version None)
Quarter: 2009Q4

REPORT INFORMATION
  Report Type: 
  Country: None (occurrence: None)
  Receive Date: 20091102
  Receipt Date: 20091023
  Transmission Date: 20100525
  Serious: Yes (Other)
  Sender: FDA-Public Use
  Company Number: TR-ABBOTT-09P-161-0600726-00

PATIENT
  Age: 44 Year
  Sex: Male
  Weight: 85 kg

DRUGS (1)
  1. HUMIRA [Suspect]
     Indication: ANKYLOSING SPONDYLITIS
     Route: 058
     Dates: start: 20090401, end: 20090825

REACTIONS (5)
  - CAUDA EQUINA SYNDROME [None]
  - GENITAL HYPOAESTHESIA [None]
  - HYPOAESTHESIA [None]
  - SENSORY LOSS [None]
  - URINE OUTPUT DECREASED [None]
